FAERS Safety Report 8009778-1 (Version None)
Quarter: 2011Q4

REPORT INFORMATION
  Report Type: 
  Country: None (occurrence: None)
  Receive Date: 20111228
  Receipt Date: 20111219
  Transmission Date: 20120403
  Serious: Yes (Other)
  Sender: FDA-Public Use
  Company Number: US-ACCORD-011712

PATIENT
  Age: 54 Year
  Sex: Female

DRUGS (6)
  1. GANCICLOVIR [Concomitant]
     Indication: INFECTION PROPHYLAXIS
  2. ANTIHYPERTENSIVES [Concomitant]
  3. MYCOPHENOLATE MOFETIL [Suspect]
     Indication: IMMUNOSUPPRESSION
  4. TACROLIMUS [Suspect]
     Indication: IMMUNOSUPPRESSION
     Dosage: 20 MG IN THE MORNING AND 15 MG AT NIGHT, MAINTAINING LEVELS NEAR 15 MG/ML.
  5. SULFAMETHOXAZOLE AND TRIMETHOPRIM [Concomitant]
     Indication: INFECTION PROPHYLAXIS
     Dosage: DOUBLE-STRENGTH, EVERY OTHER DAY
  6. PREDNISONE TAB [Suspect]
     Indication: IMMUNOSUPPRESSION

REACTIONS (9)
  - BRAIN ABSCESS [None]
  - CONVULSION [None]
  - ZYGOMYCOSIS [None]
  - CHEST PAIN [None]
  - COUGH [None]
  - HEMIANOPIA HOMONYMOUS [None]
  - NOCARDIOSIS [None]
  - LUNG INFILTRATION [None]
  - VISUAL IMPAIRMENT [None]
